FAERS Safety Report 19607382 (Version 2)
Quarter: 2021Q3

REPORT INFORMATION
  Report Type: Spontaneous
  Country: US (occurrence: US)
  Receive Date: 20210726
  Receipt Date: 20210804
  Transmission Date: 20211014
  Serious: No
  Sender: FDA-Public Use
  Company Number: US-MTPC-MTDA2021-0017538

PATIENT
  Age: 70 Year
  Sex: Male

DRUGS (2)
  1. RILUZOLE. [Suspect]
     Active Substance: RILUZOLE
     Indication: PRODUCT USED FOR UNKNOWN INDICATION
     Dosage: UNK TABLET
     Route: 065
  2. RADICAVA [Suspect]
     Active Substance: EDARAVONE
     Indication: AMYOTROPHIC LATERAL SCLEROSIS
     Dosage: 60 MILLIGRAM OVER 60 MINS QD FOR 14 DAYS, FOLLOWED BY A 14?DAY DRUG?FREE PERIOD
     Route: 042
     Dates: start: 20210710, end: 20210715

REACTIONS (2)
  - Infusion site extravasation [Unknown]
  - Poor venous access [Unknown]

NARRATIVE: CASE EVENT DATE: 20210714
